FAERS Safety Report 4836981-1 (Version None)
Quarter: 2005Q4

REPORT INFORMATION
  Report Type: 
  Country: None (occurrence: None)
  Receive Date: 20051121
  Receipt Date: 20051110
  Transmission Date: 20060501
  Serious: Yes (Life-Threatening)
  Sender: FDA-Public Use
  Company Number: HQWYE508411NOV05

PATIENT
  Age: 70 Year
  Sex: Female

DRUGS (2)
  1. MYLOTARG [Suspect]
     Indication: ACUTE MYELOID LEUKAEMIA
     Dosage: 11 MG 1X PER 1 DAY
     Route: 041
     Dates: start: 20051006, end: 20051006
  2. MYLOTARG [Suspect]
     Indication: ACUTE MYELOID LEUKAEMIA
     Dosage: 11 MG 1X PER 1 DAY
     Route: 041
     Dates: start: 20051020, end: 20051020

REACTIONS (1)
  - INTERSTITIAL LUNG DISEASE [None]
